FAERS Safety Report 8433156-4 (Version None)
Quarter: 2012Q2

REPORT INFORMATION
  Report Type: 
  Country: None (occurrence: None)
  Receive Date: 20120613
  Receipt Date: 20120607
  Transmission Date: 20120825
  Serious: Yes (Hospitalization)
  Sender: FDA-Public Use
  Company Number: US-GLAXOSMITHKLINE-A0804243A

PATIENT
  Age: 73 Year
  Sex: Male

DRUGS (6)
  1. METFORMIN HCL [Concomitant]
  2. AVANDIA [Suspect]
     Indication: DIABETES MELLITUS
     Dosage: 8MG PER DAY
     Route: 048
     Dates: start: 20060131, end: 20070119
  3. PAROXETINE [Concomitant]
  4. PRILOSEC [Concomitant]
  5. BENICAR [Concomitant]
  6. LIPITOR [Concomitant]

REACTIONS (1)
  - MYOCARDIAL INFARCTION [None]
